FAERS Safety Report 17433405 (Version 1)
Quarter: 2020Q1

REPORT INFORMATION
  Report Type: Spontaneous
  Country: BR (occurrence: BR)
  Receive Date: 20200219
  Receipt Date: 20200219
  Transmission Date: 20200409
  Serious: Yes (Other)
  Sender: FDA-Public Use
  Company Number: BR-ROCHE-2550377

PATIENT
  Sex: Female

DRUGS (3)
  1. SERTRALINE [Concomitant]
     Active Substance: SERTRALINE HYDROCHLORIDE
     Indication: ANXIETY
     Dosage: FOR 7 YEARS
     Route: 065
  2. RIVOTRIL [Suspect]
     Active Substance: CLONAZEPAM
     Indication: DEPRESSION
  3. RIVOTRIL [Suspect]
     Active Substance: CLONAZEPAM
     Indication: ANXIETY
     Route: 065

REACTIONS (10)
  - Joint injury [Unknown]
  - Tendon disorder [Unknown]
  - Pain [Unknown]
  - Intentional product misuse [Unknown]
  - Uterine disorder [Unknown]
  - Blister [Unknown]
  - Arthropathy [Unknown]
  - Crying [Unknown]
  - Fall [Unknown]
  - Mouth injury [Unknown]
